FAERS Safety Report 14597709 (Version 1)
Quarter: 2018Q1

REPORT INFORMATION
  Report Type: Spontaneous
  Country: US (occurrence: US)
  Receive Date: 20180302
  Receipt Date: 20180302
  Transmission Date: 20180509
  Serious: Yes (Death)
  Sender: FDA-Public Use
  Company Number: None

PATIENT
  Age: 45 Year
  Sex: Female

DRUGS (1)
  1. BOTOX [Suspect]
     Active Substance: ONABOTULINUMTOXINA
     Dosage: 100 UNITS EVERY 3 MONTHS IN THE MUSCLE IN THE HEAD, NECK AND AXILLA
     Dates: start: 20160330

REACTIONS (1)
  - Death [None]

NARRATIVE: CASE EVENT DATE: 20160906
